FAERS Safety Report 23187950 (Version 1)
Quarter: 2023Q4

REPORT INFORMATION
  Report Type: Spontaneous
  Country: US (occurrence: US)
  Receive Date: 20231115
  Receipt Date: 20231115
  Transmission Date: 20240109
  Serious: No
  Sender: FDA-Public Use
  Company Number: US-TEVA-2023-US-2941782

PATIENT
  Sex: Female

DRUGS (1)
  1. AJOVY [Suspect]
     Active Substance: FREMANEZUMAB-VFRM
     Indication: Product used for unknown indication
     Dosage: STRENGTH: 225 MG / 1.5 ML
     Route: 065

REACTIONS (5)
  - Skin irritation [Unknown]
  - Accidental exposure to product [Unknown]
  - Device delivery system issue [Unknown]
  - Device issue [Unknown]
  - Device audio issue [Unknown]

NARRATIVE: CASE EVENT DATE: 20230101
